FAERS Safety Report 6463913-5 (Version None)
Quarter: 2009Q4

REPORT INFORMATION
  Report Type: 
  Country: None (occurrence: None)
  Receive Date: 20091201
  Receipt Date: 20091119
  Transmission Date: 20100525
  Serious: Yes (Hospitalization, Other)
  Sender: FDA-Public Use
  Company Number: US-BAYER-200932403NA

PATIENT
  Age: 65 Year
  Sex: Male

DRUGS (8)
  1. SORAFENIB [Suspect]
     Indication: HEPATIC NEOPLASM MALIGNANT
     Dosage: TOTAL DAILY DOSE: 800 MG  UNIT DOSE: 200 MG
     Route: 048
     Dates: start: 20090810, end: 20090826
  2. SORAFENIB [Suspect]
     Dosage: TOTAL DAILY DOSE: 400 MG  UNIT DOSE: 200 MG
     Route: 048
     Dates: start: 20090925, end: 20090929
  3. SORAFENIB [Suspect]
     Dosage: TOTAL DAILY DOSE: 800 MG  UNIT DOSE: 200 MG
     Route: 048
     Dates: start: 20090930, end: 20091007
  4. HUMALOG [Concomitant]
     Dosage: TOTAL DAILY DOSE: 30 U
     Route: 058
  5. PROCHLORPERAZINE MALEATE [Concomitant]
     Dosage: AS USED: 10 MG
  6. ALDACTONE [Concomitant]
     Dosage: TOTAL DAILY DOSE: 200 MG
  7. HUMULIN N [Concomitant]
     Dosage: 15-30 UNITS EVERY MORNING DEPENDENT ON BLOOD GLUCOSE
  8. CITALOPRAM HYDROBROMIDE [Concomitant]
     Route: 048

REACTIONS (3)
  - HYPONATRAEMIA [None]
  - INAPPROPRIATE ANTIDIURETIC HORMONE SECRETION [None]
  - URINARY TRACT INFECTION [None]
